FAERS Safety Report 6219197-6 (Version None)
Quarter: 2009Q2

REPORT INFORMATION
  Report Type: 
  Country: None (occurrence: None)
  Receive Date: 20090605
  Receipt Date: 20090605
  Transmission Date: 20091009
  Serious: Yes (Other)
  Sender: FDA-Public Use
  Company Number: None

PATIENT
  Age: 62 Year
  Sex: Male
  Weight: 70.3075 kg

DRUGS (1)
  1. FLUNISOLIDE [Suspect]
     Indication: RHINITIS ALLERGIC
     Dosage: 2 SPRAYS BID NASAL
     Route: 045
     Dates: start: 20080604, end: 20090604

REACTIONS (3)
  - CONDITION AGGRAVATED [None]
  - POSTNASAL DRIP [None]
  - PRODUCT SUBSTITUTION ISSUE [None]
